FAERS Safety Report 7854676-7 (Version None)
Quarter: 2011Q4

REPORT INFORMATION
  Report Type: 
  Country: None (occurrence: None)
  Receive Date: 20111026
  Receipt Date: 20111019
  Transmission Date: 20120403
  Serious: Yes (Hospitalization)
  Sender: FDA-Public Use
  Company Number: US-MEDIMMUNE-MEDI-0012365

PATIENT
  Sex: Male
  Weight: 6.602 kg

DRUGS (1)
  1. SYNAGIS [Suspect]
     Indication: REFSUM'S DISEASE
     Route: 030
     Dates: start: 20101102, end: 20110111

REACTIONS (2)
  - LARYNGOMALACIA [None]
  - RESPIRATORY SYNCYTIAL VIRUS BRONCHITIS [None]
